FAERS Safety Report 17587499 (Version 2)
Quarter: 2020Q3

REPORT INFORMATION
  Report Type: Report from Study
  Country: US (occurrence: US)
  Receive Date: 20200326
  Receipt Date: 20200731
  Transmission Date: 20201102
  Serious: Yes (Other)
  Sender: FDA-Public Use
  Company Number: US-ACTELION-A-NJ2019-199827

PATIENT
  Sex: Female
  Weight: 61.22 kg

DRUGS (3)
  1. VELETRI [Suspect]
     Active Substance: EPOPROSTENOL
     Indication: PULMONARY ARTERIAL HYPERTENSION
     Dosage: 44.5 NG/KG, PER MIN
     Route: 042
  2. SILDENAFIL CITRATE. [Concomitant]
     Active Substance: SILDENAFIL CITRATE
  3. WARFARIN [Concomitant]
     Active Substance: WARFARIN

REACTIONS (8)
  - Sinus disorder [Unknown]
  - Diarrhoea [Not Recovered/Not Resolved]
  - Food poisoning [Unknown]
  - Pain in jaw [Unknown]
  - Influenza [Unknown]
  - Neuropathy peripheral [Not Recovered/Not Resolved]
  - Vomiting [Unknown]
  - Headache [Unknown]
